FAERS Safety Report 10026260 (Version 2)
Quarter: 2014Q1

REPORT INFORMATION
  Report Type: Spontaneous
  Country: JP (occurrence: JP)
  Receive Date: 20140320
  Receipt Date: 20140327
  Transmission Date: 20141002
  Serious: Yes (Hospitalization, Other)
  Sender: FDA-Public Use
  Company Number: JP-009507513-1403JPN007488

PATIENT
  Age: 8 Decade
  Sex: Female

DRUGS (2)
  1. NU-LOTAN TABLETS 25MG [Suspect]
     Indication: HYPERTENSION
     Dosage: 50 MG, DOSE FREQUENCY UNKONWN
     Route: 048
  2. CARVEDILOL [Suspect]
     Indication: HYPERTENSION
     Dosage: 20 MG, DOSE FREQUENCY UNKONWN
     Route: 048

REACTIONS (3)
  - Loss of consciousness [Recovering/Resolving]
  - Bradycardia [Recovering/Resolving]
  - Hyperkalaemia [Recovering/Resolving]
